FAERS Safety Report 10134404 (Version 5)
Quarter: 2014Q2

REPORT INFORMATION
  Report Type: Spontaneous
  Country: US (occurrence: US)
  Receive Date: 20140428
  Receipt Date: 20140620
  Transmission Date: 20141212
  Serious: Yes (Other)
  Sender: FDA-Public Use
  Company Number: US-PFIZER INC-2014111581

PATIENT
  Age: 51 Year
  Sex: Female
  Weight: 65.8 kg

DRUGS (4)
  1. LEVOXYL [Suspect]
     Indication: HYPOTHYROIDISM
     Dosage: 150 UG, DAILY
     Dates: start: 2008
  2. LEVOXYL [Suspect]
     Dosage: 75 UG, UNK
     Dates: start: 20140425
  3. LEVOXYL [Suspect]
  4. LEVOXYL [Suspect]
     Dosage: 0.075 UG, UNK
     Route: 048

REACTIONS (27)
  - Gastric ulcer [Unknown]
  - Speech disorder [Unknown]
  - Vaginal haemorrhage [Unknown]
  - Dizziness [Unknown]
  - Nervousness [Unknown]
  - Throat irritation [Unknown]
  - Eating disorder [Unknown]
  - Abdominal discomfort [Unknown]
  - Dyspepsia [Unknown]
  - Fatigue [Unknown]
  - Dysphagia [Unknown]
  - Tremor [Unknown]
  - Heart rate increased [Unknown]
  - Memory impairment [Unknown]
  - Weight decreased [Unknown]
  - Nausea [Unknown]
  - Abdominal pain upper [Unknown]
  - Gastrooesophageal reflux disease [Unknown]
  - Influenza like illness [Unknown]
  - Burning sensation [Unknown]
  - Musculoskeletal stiffness [Unknown]
  - Oropharyngeal pain [Unknown]
  - Dry mouth [Unknown]
  - Decreased appetite [Unknown]
  - Abdominal pain [Unknown]
  - Product taste abnormal [Unknown]
  - Expired product administered [Unknown]
